FAERS Safety Report 15702489 (Version 1)
Quarter: 2018Q4

REPORT INFORMATION
  Report Type: Spontaneous
  Country: FR (occurrence: FR)
  Receive Date: 20181210
  Receipt Date: 20181210
  Transmission Date: 20190205
  Serious: Yes (Hospitalization)
  Sender: FDA-Public Use
  Company Number: FR-ACCORD-095364

PATIENT
  Age: 44 Year
  Sex: Female

DRUGS (2)
  1. XEROQUEL [Suspect]
     Active Substance: QUETIAPINE FUMARATE
     Indication: PERSONALITY DISORDER
  2. SERTRALINE [Suspect]
     Active Substance: SERTRALINE HYDROCHLORIDE
     Indication: DEPRESSION

REACTIONS (1)
  - Interstitial lung disease [Recovered/Resolved]

NARRATIVE: CASE EVENT DATE: 201707
